FAERS Safety Report 24588228 (Version 2)
Quarter: 2024Q4

REPORT INFORMATION
  Report Type: Report from Study
  Country: GB (occurrence: GB)
  Receive Date: 20241107
  Receipt Date: 20241202
  Transmission Date: 20250114
  Serious: Yes (Hospitalization, Other)
  Sender: ALEXION PHARMACEUTICALS
  Company Number: GB-ASTRAZENECA-202410GBR028914GB

PATIENT

DRUGS (4)
  1. KANUMA [Suspect]
     Active Substance: SEBELIPASE ALFA
     Dosage: 20 MILLIGRAM, QW
  2. KANUMA [Suspect]
     Active Substance: SEBELIPASE ALFA
     Dosage: 20 MILLIGRAM, QW
  3. KANUMA [Suspect]
     Active Substance: SEBELIPASE ALFA
     Dosage: 20 MILLIGRAM, QW
  4. KANUMA [Suspect]
     Active Substance: SEBELIPASE ALFA
     Dosage: 20 MILLIGRAM, QW

REACTIONS (3)
  - Haematochezia [Unknown]
  - Feeding disorder [Not Recovered/Not Resolved]
  - Infusion related reaction [Unknown]
